FAERS Safety Report 7685964-5 (Version None)
Quarter: 2011Q3

REPORT INFORMATION
  Report Type: 
  Country: None (occurrence: None)
  Receive Date: 20110815
  Receipt Date: 20110815
  Transmission Date: 20111222
  Serious: Yes (Hospitalization, Disabling)
  Sender: FDA-Public Use
  Company Number: None

PATIENT
  Sex: Female
  Weight: 68.2 kg

DRUGS (2)
  1. ZITHROMAX [Suspect]
     Indication: PNEUMONIA
     Dosage: 200MG 5/DAY ORAL
     Route: 048
     Dates: start: 20060201
  2. TYLOSIN MINIMAL VARIOUS (CONTAINED IN ANIMAL FEED) [Suspect]

REACTIONS (4)
  - SYNCOPE [None]
  - ACUTE FEBRILE NEUTROPHILIC DERMATOSIS [None]
  - DRUG HYPERSENSITIVITY [None]
  - FALL [None]
